FAERS Safety Report 17747770 (Version 1)
Quarter: 2020Q2

REPORT INFORMATION
  Report Type: Spontaneous
  Country: US (occurrence: US)
  Receive Date: 20200505
  Receipt Date: 20200505
  Transmission Date: 20200714
  Serious: No
  Sender: FDA-Public Use
  Company Number: US-ROCHE-2498588

PATIENT
  Age: 76 Year
  Sex: Female

DRUGS (1)
  1. ESBRIET [Suspect]
     Active Substance: PIRFENIDONE
     Indication: PRODUCT USED FOR UNKNOWN INDICATION
     Route: 065

REACTIONS (12)
  - Upper respiratory tract infection [Unknown]
  - Abdominal pain upper [Unknown]
  - Constipation [Unknown]
  - Vomiting [Unknown]
  - Haemorrhagic diathesis [Unknown]
  - Productive cough [Unknown]
  - Dyspnoea exertional [Unknown]
  - Respiratory tract infection [Unknown]
  - Abdominal discomfort [Unknown]
  - Dysentery [Unknown]
  - Diarrhoea [Recovering/Resolving]
  - Limb injury [Recovered/Resolved]
